FAERS Safety Report 14337674 (Version 1)
Quarter: 2017Q4

REPORT INFORMATION
  Report Type: Spontaneous
  Country: US (occurrence: US)
  Receive Date: 20171229
  Receipt Date: 20171229
  Transmission Date: 20180321
  Serious: Yes (Other)
  Sender: FDA-Public Use
  Company Number: US-VANDA PHARMACEUTICALS, INC-2017ILOUS001663

PATIENT
  Age: 43 Year
  Sex: Male
  Weight: 90.7 kg

DRUGS (4)
  1. FANAPT [Suspect]
     Active Substance: ILOPERIDONE
     Indication: SCHIZOPHRENIA
     Dosage: 6 MG, UNK
     Route: 048
  2. ZYPREXA [Concomitant]
     Active Substance: OLANZAPINE
     Indication: PRODUCT USED FOR UNKNOWN INDICATION
     Dosage: UNK
  3. FANAPT [Suspect]
     Active Substance: ILOPERIDONE
     Dosage: 6 MG, QD
     Route: 048
     Dates: start: 201702, end: 201712
  4. FANAPT [Suspect]
     Active Substance: ILOPERIDONE
     Dosage: 6 MG, BID
     Route: 048
     Dates: start: 201712

REACTIONS (2)
  - Sinusitis [Unknown]
  - Schizophrenia [Unknown]

NARRATIVE: CASE EVENT DATE: 201711
